FAERS Safety Report 11818197 (Version 1)
Quarter: 2015Q4

REPORT INFORMATION
  Report Type: Spontaneous
  Country: US (occurrence: None)
  Receive Date: 20151209
  Receipt Date: 20151209
  Transmission Date: 20160305
  Serious: Yes (Hospitalization)
  Sender: FDA-Public Use
  Company Number: None

PATIENT
  Age: 86 Year
  Sex: Female
  Weight: 67.2 kg

DRUGS (9)
  1. COUMADIN [Suspect]
     Active Substance: WARFARIN SODIUM
     Dosage: THERAPY?CHRONIC
     Route: 048
  2. TOPROL XL [Concomitant]
     Active Substance: METOPROLOL SUCCINATE
  3. THERAGRAN [Concomitant]
     Active Substance: VITAMINS
  4. NITROSTAT [Concomitant]
     Active Substance: NITROGLYCERIN
  5. PRAVACHOL [Concomitant]
     Active Substance: PRAVASTATIN SODIUM
  6. CELEXA [Concomitant]
     Active Substance: CITALOPRAM HYDROBROMIDE
  7. NEXIUM [Concomitant]
     Active Substance: ESOMEPRAZOLE MAGNESIUM
  8. ANTIVERT [Concomitant]
     Active Substance: MECLIZINE HYDROCHLORIDE
  9. ECOTRIN [Suspect]
     Active Substance: ASPIRIN
     Route: 048

REACTIONS (6)
  - Fall [None]
  - Subarachnoid haemorrhage [None]
  - Haemorrhagic anaemia [None]
  - Metabolic encephalopathy [None]
  - Intraventricular haemorrhage [None]
  - Haematoma [None]

NARRATIVE: CASE EVENT DATE: 20150501
